FAERS Safety Report 12671428 (Version 1)
Quarter: 2016Q3

REPORT INFORMATION
  Report Type: Report from Study
  Country: US (occurrence: US)
  Receive Date: 20160822
  Receipt Date: 20160822
  Transmission Date: 20161109
  Serious: Yes (Other)
  Sender: FDA-Public Use
  Company Number: US-AMGEN-USASL2016106101

PATIENT
  Age: 68 Year
  Sex: Male

DRUGS (1)
  1. ENBREL [Suspect]
     Active Substance: ETANERCEPT
     Indication: ARTHRITIS
     Dosage: 50 MG, QWK
     Route: 065
     Dates: start: 2012

REACTIONS (10)
  - Incorrect product storage [Unknown]
  - Peripheral swelling [Unknown]
  - Off label use [Not Recovered/Not Resolved]
  - Back pain [Unknown]
  - Pain [Unknown]
  - Arthropathy [Unknown]
  - Drug dose omission [Unknown]
  - Musculoskeletal disorder [Unknown]
  - Pain in extremity [Unknown]
  - Arthritis [Unknown]

NARRATIVE: CASE EVENT DATE: 2012
